FAERS Safety Report 17429650 (Version 2)
Quarter: 2020Q1

REPORT INFORMATION
  Report Type: Report from Study
  Country: None (occurrence: US)
  Receive Date: 20200218
  Receipt Date: 20200302
  Transmission Date: 20200409
  Serious: Yes (Hospitalization, Other)
  Sender: FDA-Public Use
  Company Number: US-ABBVIE-20K-163-3225453-00

PATIENT
  Sex: Female
  Weight: 63.56 kg

DRUGS (9)
  1. PRAVASTATIN. [Concomitant]
     Active Substance: PRAVASTATIN
     Indication: BLOOD CHOLESTEROL INCREASED
  2. SINGULAIR [Concomitant]
     Active Substance: MONTELUKAST SODIUM
     Indication: PRODUCT USED FOR UNKNOWN INDICATION
     Dosage: 10
  3. HUMIRA [Suspect]
     Active Substance: ADALIMUMAB
     Indication: PSORIASIS
     Route: 058
     Dates: start: 2011, end: 2018
  4. XANAX [Concomitant]
     Active Substance: ALPRAZOLAM
     Indication: DEPRESSION
     Dosage: 0.5
  5. ASPARIN [Concomitant]
     Active Substance: ASPIRIN DL-LYSINE
     Indication: PRODUCT USED FOR UNKNOWN INDICATION
  6. HUMIRA [Suspect]
     Active Substance: ADALIMUMAB
     Route: 058
     Dates: start: 2019
  7. AMLODIPINE [Concomitant]
     Active Substance: AMLODIPINE BESYLATE
     Indication: HYPERTENSION
  8. METFORMIN [Concomitant]
     Active Substance: METFORMIN HYDROCHLORIDE
     Indication: BLOOD GLUCOSE
  9. SPIRULINA [Concomitant]
     Active Substance: SPIRULINA
     Indication: PRODUCT USED FOR UNKNOWN INDICATION

REACTIONS (10)
  - Myocardial infarction [Recovering/Resolving]
  - Asthenia [Not Recovered/Not Resolved]
  - Post procedural infection [Recovered/Resolved]
  - Cerebrovascular accident [Recovering/Resolving]
  - Coronary artery occlusion [Recovering/Resolving]
  - Muscular weakness [Not Recovered/Not Resolved]
  - Staphylococcal infection [Recovered/Resolved]
  - Fatigue [Unknown]
  - Somnolence [Unknown]
  - Seasonal allergy [Not Recovered/Not Resolved]

NARRATIVE: CASE EVENT DATE: 2015
